FAERS Safety Report 6540306-3 (Version None)
Quarter: 2010Q1

REPORT INFORMATION
  Report Type: 
  Country: None (occurrence: None)
  Receive Date: 20100115
  Receipt Date: 20100108
  Transmission Date: 20100710
  Serious: Yes (Other)
  Sender: FDA-Public Use
  Company Number: FR-ASTRAZENECA-2010SE01495

PATIENT
  Age: 42 Year
  Sex: Female

DRUGS (2)
  1. XYLOCAINE [Suspect]
     Dosage: NOT ADMINISTERED
  2. BISEPTINE [Suspect]
     Route: 058
     Dates: start: 20090417, end: 20090417

REACTIONS (4)
  - INJECTION SITE IRRITATION [None]
  - MUSCULOSKELETAL PAIN [None]
  - MYALGIA [None]
  - WRONG DRUG ADMINISTERED [None]
